FAERS Safety Report 13304209 (Version 2)
Quarter: 2017Q1

REPORT INFORMATION
  Report Type: Report from Study
  Country: AT (occurrence: AT)
  Receive Date: 20170308
  Receipt Date: 20170324
  Transmission Date: 20170428
  Serious: Yes (Hospitalization)
  Sender: FDA-Public Use
  Company Number: AT-ROCHE-1900795

PATIENT
  Age: 77 Year
  Sex: Female
  Weight: 62 kg

DRUGS (10)
  1. EBETREXAT [Suspect]
     Active Substance: METHOTREXATE SODIUM
     Indication: RHEUMATOID ARTHRITIS
     Dosage: DATE OF MOST RECENT DOSE /JAN/2017
     Route: 065
     Dates: start: 200011
  2. APREDNISLON [Concomitant]
     Active Substance: PREDNISOLONE
     Route: 065
  3. TOCILIZUMAB [Suspect]
     Active Substance: TOCILIZUMAB
     Indication: RHEUMATOID ARTHRITIS
     Dosage: MOST RECENT DOSE /JAN/2017
     Route: 042
     Dates: start: 201402
  4. PREDNISOLON [Suspect]
     Active Substance: PREDNISOLONE
     Route: 065
  5. LISINOPRIL. [Concomitant]
     Active Substance: LISINOPRIL
  6. NEBIVOLOL. [Concomitant]
     Active Substance: NEBIVOLOL
  7. VOLTAREN [Concomitant]
     Active Substance: DICLOFENAC SODIUM
     Dosage: AS REQUIRED
     Route: 065
  8. TOCILIZUMAB [Suspect]
     Active Substance: TOCILIZUMAB
     Indication: RHEUMATOID ARTHRITIS
     Route: 058
     Dates: start: 201602
  9. PREDNISOLON [Suspect]
     Active Substance: PREDNISOLONE
     Indication: RHEUMATOID ARTHRITIS
     Route: 065
  10. FOLSAN [Concomitant]
     Active Substance: FOLIC ACID

REACTIONS (2)
  - Osteoporotic fracture [Recovered/Resolved]
  - Urinary tract infection [Recovered/Resolved]

NARRATIVE: CASE EVENT DATE: 20160208
